FAERS Safety Report 4551510-8 (Version None)
Quarter: 2005Q1

REPORT INFORMATION
  Report Type: 
  Country: None (occurrence: None)
  Receive Date: 20050110
  Receipt Date: 20041227
  Transmission Date: 20050727
  Serious: Yes (Disabling, Other)
  Sender: FDA-Public Use
  Company Number: 2004114515

PATIENT
  Age: 63 Year
  Sex: Male
  Weight: 70 kg

DRUGS (5)
  1. AZITHROMYCIN [Suspect]
     Indication: ASTHMA
     Dosage: 500 MG (500 MG, 1 IN 1 D), ORAL
     Route: 048
  2. AZITHROMYCIN [Suspect]
     Indication: ILL-DEFINED DISORDER
     Dosage: 500 MG (500 MG, 1 IN 1 D), ORAL
     Route: 048
  3. PL GRAN. (CAFFEINE, PARACETAMOL, PROMETHAZINE METHYLENE DISALICYLATE, [Concomitant]
  4. TRANEXAMIC ACID              (TRANEXAMIC ACID) [Concomitant]
  5. CROMOGLICATE SODIUM        (CROMOGLICATE SODIUM) [Concomitant]

REACTIONS (3)
  - ABNORMAL SENSATION IN EYE [None]
  - MALAISE [None]
  - UVEITIS [None]
